FAERS Safety Report 7071265-5 (Version None)
Quarter: 2010Q4

REPORT INFORMATION
  Report Type: 
  Country: None (occurrence: None)
  Receive Date: 20101028
  Receipt Date: 20101028
  Transmission Date: 20110411
  Serious: Yes (Other)
  Sender: FDA-Public Use
  Company Number: None

PATIENT
  Sex: Female
  Weight: 81.8 kg

DRUGS (1)
  1. NITROFURANTOIN [Suspect]
     Indication: URINARY TRACT INFECTION
     Dosage: 100MG 2 A DAY ORAL
     Route: 048
     Dates: start: 20101007, end: 20101014

REACTIONS (7)
  - ASTHENIA [None]
  - CHILLS [None]
  - FACIAL PAIN [None]
  - HEADACHE [None]
  - PAIN [None]
  - PYREXIA [None]
  - TINNITUS [None]
